FAERS Safety Report 10745914 (Version 4)
Quarter: 2015Q2

REPORT INFORMATION
  Report Type: Spontaneous
  Country: US (occurrence: US)
  Receive Date: 20150128
  Receipt Date: 20150608
  Transmission Date: 20150821
  Serious: Yes (Other)
  Sender: FDA-Public Use
  Company Number: US-GLAXOSMITHKLINE-US2014GSK048600

PATIENT
  Sex: Male

DRUGS (1)
  1. VOTRIENT [Suspect]
     Active Substance: PAZOPANIB HYDROCHLORIDE
     Indication: RENAL CANCER
     Dosage: 800 MG, QD
     Dates: start: 20141105

REACTIONS (8)
  - Asthenia [Unknown]
  - Shunt occlusion [Unknown]
  - Hepatic function abnormal [Unknown]
  - Alopecia [Unknown]
  - Bile duct obstruction [Unknown]
  - Renal impairment [Unknown]
  - Medical device implantation [Unknown]
  - Renal function test abnormal [Unknown]
